FAERS Safety Report 25524850 (Version 2)
Quarter: 2025Q3

REPORT INFORMATION
  Report Type: Spontaneous
  Country: US (occurrence: US)
  Receive Date: 20250707
  Receipt Date: 20250717
  Transmission Date: 20251020
  Serious: Yes (Death, Hospitalization)
  Sender: TEVA
  Company Number: US-TEVA-VS-3347834

PATIENT
  Age: 15 Year
  Sex: Male

DRUGS (11)
  1. METHYLPREDNISOLONE [Suspect]
     Active Substance: METHYLPREDNISOLONE
     Indication: Neuromyelitis optica spectrum disorder
     Route: 042
     Dates: start: 20220714, end: 20220717
  2. IMMUNE GLOBULIN NOS [Suspect]
     Active Substance: IMMUNE GLOBULIN NOS
     Indication: Neuromyelitis optica spectrum disorder
     Dosage: DOSAGE: 2 G/KG IVIG 2G/KG; SCHEDULED FOR 5 DAYS
     Route: 042
     Dates: start: 20220728, end: 20220802
  3. INSULIN NOS [Concomitant]
     Active Substance: INSULIN NOS
     Indication: Diabetic ketoacidosis
     Route: 041
     Dates: start: 2023
  4. PREDNISONE [Suspect]
     Active Substance: PREDNISONE
     Indication: Neuromyelitis optica spectrum disorder
     Dosage: A SLOW ORAL PREDNISONE TAPER BEGINNING AT 60MG DAILY AND DECREASING BY 5MG WEEKLY,
     Route: 048
     Dates: start: 20220809
  5. PREDNISONE [Suspect]
     Active Substance: PREDNISONE
     Indication: Neuromyelitis optica spectrum disorder
     Dosage: A SLOW ORAL PREDNISONE TAPER BEGINNING AT 60MG DAILY AND DECREASING BY 5MG WEEKLY,
     Route: 048
  6. AMPHOTERICIN B [Suspect]
     Active Substance: AMPHOTERICIN B
     Indication: Aspergillus infection
     Route: 050
     Dates: start: 20230209
  7. MICAFUNGIN [Suspect]
     Active Substance: MICAFUNGIN SODIUM
     Indication: Aspergillus infection
     Route: 065
     Dates: start: 20230209, end: 2023
  8. TOCILIZUMAB [Suspect]
     Active Substance: TOCILIZUMAB
     Indication: Neuromyelitis optica spectrum disorder
     Route: 042
     Dates: start: 20221228
  9. CEFEPIME [Suspect]
     Active Substance: CEFEPIME HYDROCHLORIDE
     Indication: Aspergillus infection
     Route: 065
     Dates: start: 2023
  10. VANCOMYCIN [Suspect]
     Active Substance: VANCOMYCIN
     Indication: Aspergillus infection
     Route: 065
     Dates: start: 2023
  11. METRONIDAZOLE [Suspect]
     Active Substance: METRONIDAZOLE
     Indication: Aspergillus infection
     Route: 065
     Dates: start: 2023

REACTIONS (5)
  - Aspergillus infection [Fatal]
  - Unresponsive to stimuli [Fatal]
  - Duodenal perforation [Fatal]
  - Organ failure [Fatal]
  - Drug ineffective [Fatal]

NARRATIVE: CASE EVENT DATE: 20220101
